FAERS Safety Report 6933219-6 (Version None)
Quarter: 2010Q3

REPORT INFORMATION
  Report Type: 
  Country: None (occurrence: None)
  Receive Date: 20100820
  Receipt Date: 20100816
  Transmission Date: 20110219
  Serious: Yes (Other)
  Sender: FDA-Public Use
  Company Number: US-ASTRAZENECA-2006UW24124

PATIENT
  Age: 49 Year
  Sex: Female
  Weight: 89.8 kg

DRUGS (16)
  1. SEROQUEL [Suspect]
     Indication: DEPRESSION
     Dosage: 25-750 MG
     Route: 048
     Dates: start: 19980101, end: 20060601
  2. SEROQUEL [Suspect]
     Indication: BIPOLAR DISORDER
     Dosage: 25-750 MG
     Route: 048
     Dates: start: 19980101, end: 20060601
  3. SEROQUEL [Suspect]
     Indication: SLEEP DISORDER
     Dosage: 25-750 MG
     Route: 048
     Dates: start: 19980101, end: 20060601
  4. ZYPREXA [Concomitant]
     Indication: BIPOLAR DISORDER
     Route: 048
     Dates: start: 19980601, end: 19990101
  5. ZYPREXA [Concomitant]
     Indication: SLEEP DISORDER
     Route: 048
     Dates: start: 19980601, end: 19990101
  6. HALDOL [Concomitant]
     Dosage: 5MG/ML, 10ML VIAL
     Route: 030
     Dates: start: 19980602
  7. HALDOL [Concomitant]
     Route: 065
     Dates: start: 20060101
  8. HALOPERIDOL [Concomitant]
     Dates: start: 19980603
  9. CLONAZEPAM [Concomitant]
     Indication: AGITATION
     Route: 048
     Dates: start: 19980601
  10. CLONAZEPAM [Concomitant]
     Indication: SLEEP DISORDER
     Route: 048
     Dates: start: 19980601
  11. PAXIL [Concomitant]
     Dates: start: 19980601
  12. ABILIFY [Concomitant]
     Dates: start: 20060101
  13. CLOZARIL [Concomitant]
     Dates: start: 19980101
  14. THORAZINE [Concomitant]
     Dates: start: 19980101, end: 19990101
  15. DEPAKOTE [Concomitant]
  16. ZOLOFT [Concomitant]

REACTIONS (3)
  - DIABETIC NEUROPATHY [None]
  - TYPE 1 DIABETES MELLITUS [None]
  - TYPE 2 DIABETES MELLITUS [None]
